FAERS Safety Report 7822635-6 (Version None)
Quarter: 2011Q4

REPORT INFORMATION
  Report Type: 
  Country: None (occurrence: None)
  Receive Date: 20111018
  Receipt Date: 20111003
  Transmission Date: 20120403
  Serious: Yes (Other)
  Sender: FDA-Public Use
  Company Number: IN-WATSON-2011-16560

PATIENT
  Age: 3 Year
  Sex: Male

DRUGS (1)
  1. VALPROATE SODIUM [Suspect]
     Indication: CONVULSION
     Dosage: 20 MG/KG/DAY

REACTIONS (5)
  - HYPOXIC-ISCHAEMIC ENCEPHALOPATHY [None]
  - HYPERAMMONAEMIC ENCEPHALOPATHY [None]
  - TOXICITY TO VARIOUS AGENTS [None]
  - COMA [None]
  - NUCLEAR MAGNETIC RESONANCE IMAGING BRAIN ABNORMAL [None]
